FAERS Safety Report 5897286-3 (Version None)
Quarter: 2008Q3

REPORT INFORMATION
  Report Type: 
  Country: None (occurrence: None)
  Receive Date: 20080924
  Receipt Date: 20080924
  Transmission Date: 20090109
  Serious: No
  Sender: FDA-Public Use
  Company Number: None

PATIENT

DRUGS (1)
  1. JANUVIA [Suspect]
     Indication: DIABETES MELLITUS
     Dosage: 100MG DAILY ORAL
     Route: 048
     Dates: start: 20080724, end: 20080815

REACTIONS (1)
  - RASH MORBILLIFORM [None]
